FAERS Safety Report 9339022 (Version 3)
Quarter: 2013Q3

REPORT INFORMATION
  Report Type: Spontaneous
  Country: JP (occurrence: JP)
  Receive Date: 20130610
  Receipt Date: 20130709
  Transmission Date: 20140515
  Serious: Yes (Other)
  Sender: FDA-Public Use
  Company Number: JP-OTSUKA-JP-2013-12081

PATIENT
  Age: 64 Year
  Sex: Male
  Weight: 67 kg

DRUGS (12)
  1. SAMSCA [Suspect]
     Indication: CARDIAC FAILURE
     Dosage: 15 MG MILLIGRAM(S), QAM
     Route: 048
     Dates: start: 20130501, end: 20130529
  2. AMINOLEBAN EN [Concomitant]
     Dosage: 100 G GRAM(S), DAILY DOSE
     Route: 048
  3. GASMOTIN [Concomitant]
     Dosage: 5 MG MILLIGRAM(S), TID
     Route: 048
  4. GLYCYRON [Concomitant]
     Dosage: 1 DF DOSAGE FORM, TID
     Route: 048
  5. CARNACULIN [Concomitant]
     Dosage: 25 IU, TID
     Route: 048
  6. URSO [Concomitant]
     Dosage: 200 MG MILLIGRAM(S), TID
     Route: 048
  7. METHYCOBAL [Concomitant]
     Dosage: 500 MCG, TID
     Route: 048
  8. DIFLUCAN [Concomitant]
     Dosage: 200 MG MILLIGRAM(S), QD
     Route: 048
  9. MICARDIS [Concomitant]
     Indication: HYPERTENSION
     Dosage: 80 MG MILLIGRAM(S), QD
     Route: 048
     Dates: start: 20100701
  10. PARIET [Concomitant]
     Indication: GASTRIC ULCER
     Dosage: 20 MG MILLIGRAM(S), QD
     Route: 048
     Dates: start: 20130319
  11. LASIX [Concomitant]
     Indication: CARDIAC FAILURE
     Dosage: 40 MG MILLIGRAM(S), BID
     Route: 048
     Dates: start: 20130319
  12. SPIRONOLACTONE [Concomitant]
     Indication: CARDIAC FAILURE
     Dosage: 75 MG MILLIGRAM(S), BID
     Route: 048
     Dates: start: 20130319

REACTIONS (2)
  - Drug eruption [Recovering/Resolving]
  - Eosinophil count increased [Unknown]
